FAERS Safety Report 9019029 (Version 2)
Quarter: 2013Q2

REPORT INFORMATION
  Report Type: Spontaneous
  Country: US (occurrence: US)
  Receive Date: 20130118
  Receipt Date: 20130418
  Transmission Date: 20140414
  Serious: Yes (Death)
  Sender: FDA-Public Use
  Company Number: US-GILEAD-2013-0068053

PATIENT
  Age: 47 Year
  Sex: Female

DRUGS (2)
  1. LETAIRIS [Suspect]
     Indication: PULMONARY HYPERTENSION
     Dosage: 10 MG, QD
     Route: 048
     Dates: start: 20100308
  2. LETAIRIS [Suspect]
     Indication: RESTRICTIVE PULMONARY DISEASE

REACTIONS (2)
  - Respiratory failure [Fatal]
  - Right ventricular failure [Fatal]
